FAERS Safety Report 9581984 (Version 1)
Quarter: 2013Q4

REPORT INFORMATION
  Report Type: Spontaneous
  Country: JP (occurrence: JP)
  Receive Date: 20131002
  Receipt Date: 20131002
  Transmission Date: 20140711
  Serious: Yes (Other)
  Sender: FDA-Public Use
  Company Number: JP-009507513-1310JPN000349

PATIENT
  Sex: Male

DRUGS (1)
  1. TEMODAL [Suspect]
     Dosage: DAILY DOSAGE UNKNOWN
     Route: 048

REACTIONS (4)
  - Epilepsy [Unknown]
  - Syncope [Unknown]
  - Decreased appetite [Unknown]
  - Constipation [Unknown]
